FAERS Safety Report 9589050 (Version 1)
Quarter: 2013Q4

REPORT INFORMATION
  Report Type: Spontaneous
  Country: US (occurrence: US)
  Receive Date: 20131003
  Receipt Date: 20131003
  Transmission Date: 20140711
  Serious: No
  Sender: FDA-Public Use
  Company Number: US-AMGEN-USASP2012068475

PATIENT
  Age: 48 Year
  Sex: Female
  Weight: 54.42 kg

DRUGS (6)
  1. ENBREL [Suspect]
     Indication: RHEUMATOID ARTHRITIS
     Dosage: 50 MG, QWK
     Route: 058
  2. SYNTHROID [Concomitant]
     Dosage: 112 MUG, UNK
  3. PAXIL [Concomitant]
     Dosage: 30 MG, UNK
  4. FISH OIL [Concomitant]
     Dosage: UNK
  5. RESTASIS [Concomitant]
     Dosage: 0.05 %, UNK
  6. ACIDOPHILUS [Concomitant]
     Dosage: UNK

REACTIONS (5)
  - Injection site rash [Unknown]
  - Injection site erythema [Unknown]
  - Injection site swelling [Unknown]
  - Injection site pruritus [Unknown]
  - Injection site reaction [Unknown]
